FAERS Safety Report 9120199 (Version 1)
Quarter: 2013Q1

REPORT INFORMATION
  Report Type: Spontaneous
  Country: US (occurrence: US)
  Receive Date: 20130226
  Receipt Date: 20130226
  Transmission Date: 20140127
  Serious: Yes (Other)
  Sender: FDA-Public Use
  Company Number: US-PFIZER INC-2013066059

PATIENT
  Age: 52 Year
  Sex: Male
  Weight: 74.83 kg

DRUGS (1)
  1. ADVIL [Suspect]
     Indication: PAIN
     Dosage: 800 MG (TAKING FOUR TABLETS OF 200MG), FOUR TIMES A DAY
     Route: 048
     Dates: start: 20130219, end: 20130220

REACTIONS (4)
  - Overdose [Unknown]
  - Vertigo [Unknown]
  - Dizziness [Unknown]
  - Nausea [Unknown]
